FAERS Safety Report 9256044 (Version 1)
Quarter: 2013Q2

REPORT INFORMATION
  Report Type: Spontaneous
  Country: US (occurrence: US)
  Receive Date: 20130425
  Receipt Date: 20130425
  Transmission Date: 20140414
  Serious: No
  Sender: FDA-Public Use
  Company Number: US-AMGEN-USASP2012006968

PATIENT
  Age: 46 Year
  Sex: Female

DRUGS (6)
  1. NEULASTA [Suspect]
     Indication: CHEMOTHERAPY
     Dosage: UNK
     Dates: start: 201108
  2. CYCLOPHOSPHAMIDE [Concomitant]
  3. DOXORUBICIN [Concomitant]
  4. ONCOVIN [Concomitant]
  5. PREDNISONE [Concomitant]
  6. RITUXIMAB [Concomitant]

REACTIONS (1)
  - Arthralgia [Not Recovered/Not Resolved]
